FAERS Safety Report 5424908-3 (Version None)
Quarter: 2007Q3

REPORT INFORMATION
  Report Type: 
  Country: None (occurrence: None)
  Receive Date: 20070824
  Receipt Date: 20070813
  Transmission Date: 20080115
  Serious: Yes (Hospitalization, Other)
  Sender: FDA-Public Use
  Company Number: US-ELI_LILLY_AND_COMPANY-US200708002681

PATIENT
  Sex: Female

DRUGS (2)
  1. FORTEO [Suspect]
     Dates: start: 20061101, end: 20061101
  2. FORTEO [Suspect]
     Dates: start: 20060101

REACTIONS (6)
  - FALL [None]
  - FEAR [None]
  - HAND FRACTURE [None]
  - HIP FRACTURE [None]
  - OEDEMA PERIPHERAL [None]
  - WRIST FRACTURE [None]
